FAERS Safety Report 13946182 (Version 1)
Quarter: 2017Q3

REPORT INFORMATION
  Report Type: Spontaneous
  Country: US (occurrence: US)
  Receive Date: 20170907
  Receipt Date: 20170907
  Transmission Date: 20171128
  Serious: No
  Sender: FDA-Public Use
  Company Number: US-BAYER-2017-166535

PATIENT
  Sex: Male

DRUGS (9)
  1. BETASERON [Suspect]
     Active Substance: INTERFERON BETA-1B
     Indication: MULTIPLE SCLEROSIS
     Dosage: 0.3 MG, UNK
  2. CYPROHEPTADINE HYDROCHLORIDE. [Concomitant]
     Active Substance: CYPROHEPTADINE HYDROCHLORIDE
  3. LYRICA [Concomitant]
     Active Substance: PREGABALIN
  4. PREDNISOLONE. [Concomitant]
     Active Substance: PREDNISOLONE
  5. AMITRIPTYLINE HCL [Concomitant]
     Active Substance: AMITRIPTYLINE
  6. LEVOFLOXACIN. [Concomitant]
     Active Substance: LEVOFLOXACIN
  7. CYMBALTA [Concomitant]
     Active Substance: DULOXETINE HYDROCHLORIDE
  8. BACLOFEN. [Concomitant]
     Active Substance: BACLOFEN
  9. DULOXETINE HYDROCHLORIDE. [Concomitant]
     Active Substance: DULOXETINE HYDROCHLORIDE

REACTIONS (1)
  - Infection [Recovered/Resolved]
